FAERS Safety Report 5516819-X (Version None)
Quarter: 2007Q4

REPORT INFORMATION
  Report Type: 
  Country: None (occurrence: None)
  Receive Date: 20071114
  Receipt Date: 20071031
  Transmission Date: 20080405
  Serious: Yes (Hospitalization, Other)
  Sender: FDA-Public Use
  Company Number: GB-AMGEN-UK229951

PATIENT
  Sex: Female
  Weight: 60 kg

DRUGS (7)
  1. NEUPOGEN [Suspect]
     Indication: NEUTROPENIA
     Route: 058
     Dates: start: 20070608, end: 20070608
  2. DEXAMETHASONE [Concomitant]
     Route: 048
     Dates: start: 20070606, end: 20070609
  3. EPIRUBICIN [Concomitant]
     Route: 042
     Dates: start: 20070606, end: 20070606
  4. FLUOROURACIL [Concomitant]
     Route: 042
     Dates: start: 20070606, end: 20070606
  5. CYCLOPHOSPHAMIDE [Concomitant]
     Route: 042
     Dates: start: 20070606, end: 20070606
  6. ONDANSETRON [Concomitant]
     Route: 048
     Dates: start: 20070607, end: 20070607
  7. METOCLOPRAMIDE [Concomitant]
     Route: 048
     Dates: start: 20070606, end: 20070608

REACTIONS (10)
  - ABDOMINAL PAIN [None]
  - ANAPHYLACTOID REACTION [None]
  - CHEST DISCOMFORT [None]
  - DYSPNOEA [None]
  - LOSS OF CONSCIOUSNESS [None]
  - MALAISE [None]
  - PHARYNGEAL OEDEMA [None]
  - SWOLLEN TONGUE [None]
  - VOMITING [None]
  - WHEEZING [None]
